FAERS Safety Report 6957907-0 (Version None)
Quarter: 2010Q3

REPORT INFORMATION
  Report Type: 
  Country: None (occurrence: None)
  Receive Date: 20100830
  Receipt Date: 20100830
  Transmission Date: 20110219
  Serious: No
  Sender: FDA-Public Use
  Company Number: None

PATIENT
  Age: 51 Year
  Sex: Male
  Weight: 127.0072 kg

DRUGS (3)
  1. ADVAIR DISKUS 100/50 [Suspect]
     Indication: ASTHMA
     Dosage: 250/50 TWICE DAILY
     Dates: start: 20070420, end: 20080215
  2. ADVAIR DISKUS 100/50 [Suspect]
     Indication: CHRONIC OBSTRUCTIVE PULMONARY DISEASE
     Dosage: 250/50 TWICE DAILY
     Dates: start: 20070420, end: 20080215
  3. ADVAIR HFA [Suspect]
     Dosage: 115/21 TWICE DAILY
     Dates: start: 20080215, end: 20100831

REACTIONS (1)
  - TOOTH DISORDER [None]
